FAERS Safety Report 9958726 (Version 1)
Quarter: 2014Q1

REPORT INFORMATION
  Report Type: Report from Study
  Country: US (occurrence: US)
  Receive Date: 20140305
  Receipt Date: 20140305
  Transmission Date: 20141002
  Serious: No
  Sender: FDA-Public Use
  Company Number: US-ABBVIE-13P-163-1103323-00

PATIENT
  Sex: Female

DRUGS (2)
  1. HUMIRA [Suspect]
     Indication: SWEAT GLAND DISORDER
     Route: 058
  2. HERBALIFE PROTEIN [Concomitant]
     Indication: PHYTOTHERAPY

REACTIONS (3)
  - Globulins increased [Unknown]
  - Haemoglobin decreased [Unknown]
  - Drug ineffective [Unknown]
